FAERS Safety Report 7127636-1 (Version None)
Quarter: 2010Q4

REPORT INFORMATION
  Report Type: 
  Country: None (occurrence: None)
  Receive Date: 20101130
  Receipt Date: 20101117
  Transmission Date: 20110411
  Serious: Yes (Hospitalization)
  Sender: FDA-Public Use
  Company Number: US-BIOGENIDEC-2010BI035223

PATIENT
  Age: 55 Year
  Sex: Male

DRUGS (1)
  1. TYSABRI [Suspect]
     Indication: MULTIPLE SCLEROSIS
     Route: 042
     Dates: start: 20081015

REACTIONS (4)
  - CARPAL TUNNEL SYNDROME [None]
  - FALL [None]
  - JOINT DISLOCATION [None]
  - MULTIPLE SCLEROSIS RELAPSE [None]
